FAERS Safety Report 15766306 (Version 1)
Quarter: 2018Q4

REPORT INFORMATION
  Report Type: Spontaneous
  Country: US (occurrence: US)
  Receive Date: 20181227
  Receipt Date: 20181227
  Transmission Date: 20190205
  Serious: Yes (Other)
  Sender: FDA-Public Use
  Company Number: US-MYLANLABS-2018M1094759

PATIENT
  Age: 23 Year
  Sex: Male

DRUGS (17)
  1. PREDNISONE. [Suspect]
     Active Substance: PREDNISONE
     Dosage: 10 MILLIGRAM, QD
     Route: 048
  2. METHOTREXATE. [Suspect]
     Active Substance: METHOTREXATE
     Indication: RETINAL VASCULITIS
  3. PREDNISONE. [Suspect]
     Active Substance: PREDNISONE
     Indication: PROPHYLAXIS
     Dosage: 20 MILLIGRAM, QD
     Route: 048
  4. CICLOSPORIN [Suspect]
     Active Substance: CYCLOSPORINE
     Indication: RETINAL VASCULITIS
  5. METHOTREXATE. [Suspect]
     Active Substance: METHOTREXATE
     Indication: RETINAL VASCULITIS
  6. PREDNISOLONE. [Suspect]
     Active Substance: PREDNISOLONE
     Indication: RETINAL VASCULITIS
  7. METHOTREXATE. [Suspect]
     Active Substance: METHOTREXATE
     Indication: PROPHYLAXIS
     Dosage: 25 MILLIGRAM, QW
     Route: 058
  8. CICLOSPORIN [Suspect]
     Active Substance: CYCLOSPORINE
     Indication: PROPHYLAXIS
     Dosage: 150 MILLIGRAM
     Route: 048
  9. BEVACIZUMAB. [Concomitant]
     Active Substance: BEVACIZUMAB
     Indication: PROPHYLAXIS
     Route: 050
  10. PREDNISONE. [Suspect]
     Active Substance: PREDNISONE
     Dosage: 2 MILLIGRAM, QD
     Route: 048
  11. METHOTREXATE. [Suspect]
     Active Substance: METHOTREXATE
     Indication: PROPHYLAXIS
     Dosage: 15 MILLLIGRAM
     Route: 048
  12. METHOTREXATE. [Suspect]
     Active Substance: METHOTREXATE
     Indication: UVEITIS
  13. PREDNISOLONE. [Suspect]
     Active Substance: PREDNISOLONE
     Indication: PROPHYLAXIS
     Route: 061
  14. PREDNISONE. [Suspect]
     Active Substance: PREDNISONE
     Indication: UVEITIS
     Dosage: DOSE REDUCED TO 20 MG
     Route: 048
  15. METHOTREXATE. [Suspect]
     Active Substance: METHOTREXATE
     Indication: UVEITIS
  16. PREDNISONE. [Suspect]
     Active Substance: PREDNISONE
     Indication: RETINAL VASCULITIS
     Dosage: 3 MILLIGRAM, QD
     Route: 048
  17. CICLOSPORIN [Suspect]
     Active Substance: CYCLOSPORINE
     Indication: UVEITIS
     Dosage: 300 MILLIGRAM, QD
     Route: 048

REACTIONS (3)
  - Treatment failure [Unknown]
  - Intraocular pressure increased [Recovering/Resolving]
  - Cushingoid [Unknown]
